FAERS Safety Report 21848355 (Version 1)
Quarter: 2023Q1

REPORT INFORMATION
  Report Type: Spontaneous
  Country: JP (occurrence: JP)
  Receive Date: 20230111
  Receipt Date: 20230111
  Transmission Date: 20230418
  Serious: Yes (Life-Threatening, Hospitalization)
  Sender: FDA-Public Use
  Company Number: JP-Eisai-202212992_HAL_P_1

PATIENT
  Age: 69 Year
  Sex: Female

DRUGS (1)
  1. HALAVEN [Suspect]
     Active Substance: ERIBULIN MESYLATE
     Indication: Breast cancer recurrent
     Dosage: DOSE UNKNOWN
     Route: 041
     Dates: start: 20220712, end: 202211

REACTIONS (2)
  - Febrile neutropenia [Recovered/Resolved]
  - Sepsis [Recovered/Resolved]

NARRATIVE: CASE EVENT DATE: 20220101
